FAERS Safety Report 8813636 (Version 1)
Quarter: 2012Q4

REPORT INFORMATION
  Report Type: 
  Country: BR (occurrence: BR)
  Receive Date: 20120927
  Receipt Date: 20120927
  Transmission Date: 20130627
  Serious: Yes (Other)
  Sender: FDA-Public Use
  Company Number: BR-PFIZER INC-2012237752

PATIENT
  Age: 44 Year
  Sex: Female
  Weight: 62 kg

DRUGS (1)
  1. LYRICA [Suspect]
     Indication: PROCEDURAL PAIN
     Dosage: 1 capsule (75 mg), 2x/day (every 12 hours)
     Route: 048
     Dates: start: 20120921, end: 20120922

REACTIONS (4)
  - Pyrexia [Recovering/Resolving]
  - Skin plaque [Recovering/Resolving]
  - Vomiting [Recovered/Resolved]
  - Dizziness [Unknown]
